FAERS Safety Report 24593047 (Version 1)
Quarter: 2024Q4

REPORT INFORMATION
  Report Type: Report from Study
  Country: KR (occurrence: KR)
  Receive Date: 20241108
  Receipt Date: 20241108
  Transmission Date: 20250114
  Serious: Yes (Hospitalization)
  Sender: JOHNSON AND JOHNSON
  Company Number: KR-JNJFOC-20240262175

PATIENT
  Age: 78 Year
  Sex: Female
  Weight: 60 kg

DRUGS (6)
  1. LAZERTINIB [Suspect]
     Active Substance: LAZERTINIB
     Indication: Non-small cell lung cancer
     Route: 048
     Dates: start: 20231023, end: 20231217
  2. LAZERTINIB [Suspect]
     Active Substance: LAZERTINIB
     Route: 048
     Dates: start: 20231218
  3. SOLONDO [ISOTRETINOIN] [Concomitant]
     Route: 048
     Dates: start: 20240122, end: 20240207
  4. SOLONDO [ISOTRETINOIN] [Concomitant]
     Route: 048
     Dates: start: 20240122, end: 20240128
  5. SOLONDO [ISOTRETINOIN] [Concomitant]
     Route: 048
     Dates: start: 20240129, end: 20240204
  6. SOLONDO [ISOTRETINOIN] [Concomitant]
     Route: 048
     Dates: start: 20240205, end: 20240207

REACTIONS (2)
  - Cranial nerve paralysis [Recovered/Resolved with Sequelae]
  - Eyelid ptosis [Not Recovered/Not Resolved]

NARRATIVE: CASE EVENT DATE: 20240115
